FAERS Safety Report 11637739 (Version 5)
Quarter: 2015Q4

REPORT INFORMATION
  Report Type: Spontaneous
  Country: US (occurrence: US)
  Receive Date: 20151016
  Receipt Date: 20151231
  Transmission Date: 20160304
  Serious: Yes (Death, Hospitalization)
  Sender: FDA-Public Use
  Company Number: US-UNITED THERAPEUTICS-UNT-2015-012860

PATIENT
  Age: 49 Year
  Sex: Male
  Weight: 53.52 kg

DRUGS (4)
  1. REVATIO [Concomitant]
     Active Substance: SILDENAFIL CITRATE
     Indication: PRODUCT USED FOR UNKNOWN INDICATION
  2. REMODULIN [Suspect]
     Active Substance: TREPROSTINIL
     Dosage: UNK
  3. REMODULIN [Suspect]
     Active Substance: TREPROSTINIL
     Indication: PULMONARY HYPERTENSION
     Dosage: 0.0645 ?G/KG, CONTINUING
     Route: 041
     Dates: start: 20150302
  4. REMODULIN [Suspect]
     Active Substance: TREPROSTINIL
     Dosage: 0.0645 ?G/KG, CONTINUING
     Route: 041

REACTIONS (6)
  - Device related infection [Unknown]
  - Device occlusion [Unknown]
  - Drug dose omission [Unknown]
  - Respiratory failure [Fatal]
  - Pneumonia [Unknown]
  - Pulmonary haemorrhage [Unknown]

NARRATIVE: CASE EVENT DATE: 201510
